FAERS Safety Report 5682149-9 (Version None)
Quarter: 2008Q1

REPORT INFORMATION
  Report Type: 
  Country: None (occurrence: None)
  Receive Date: 20080327
  Receipt Date: 20080317
  Transmission Date: 20080703
  Serious: Yes (Life-Threatening)
  Sender: FDA-Public Use
  Company Number: GB-RANBAXY-2008RR-13834

PATIENT

DRUGS (3)
  1. FLUOXETINE [Suspect]
     Dosage: 20 MG, UNK
     Dates: start: 20080218, end: 20080227
  2. DICLOFENAC SODIUM [Concomitant]
  3. FLUCLOXACILLIN [Concomitant]
     Dosage: 250 MG, QID
     Dates: start: 20080218

REACTIONS (3)
  - ANXIETY [None]
  - FEELING ABNORMAL [None]
  - SUICIDAL IDEATION [None]
